FAERS Safety Report 15592059 (Version 1)
Quarter: 2018Q4

REPORT INFORMATION
  Report Type: Spontaneous
  Country: US (occurrence: US)
  Receive Date: 20181106
  Receipt Date: 20181106
  Transmission Date: 20190205
  Serious: No
  Sender: FDA-Public Use
  Company Number: US-PFIZER INC-2018442715

PATIENT
  Age: 46 Year
  Sex: Female

DRUGS (11)
  1. RANITIDINE [RANITIDINE HYDROCHLORIDE] [Concomitant]
     Dosage: UNK
  2. PREDNISONE [PREDNISONE ACETATE] [Concomitant]
     Dosage: UNK
  3. FOLIC ACID. [Concomitant]
     Active Substance: FOLIC ACID
     Dosage: UNK
  4. HYDROXYCHLOROQUINE [HYDROXYCHLOROQUINE SULFATE] [Concomitant]
     Dosage: UNK
  5. XELJANZ XR [Suspect]
     Active Substance: TOFACITINIB CITRATE
     Indication: IRRITABLE BOWEL SYNDROME
  6. TRINTELLIX [Concomitant]
     Active Substance: VORTIOXETINE HYDROBROMIDE
     Dosage: UNK
  7. ALPRAZOLAM. [Concomitant]
     Active Substance: ALPRAZOLAM
     Dosage: UNK
  8. XELJANZ XR [Suspect]
     Active Substance: TOFACITINIB CITRATE
     Indication: RHEUMATOID ARTHRITIS
     Dosage: 11 MG, DAILY
     Route: 048
  9. METHOTREXATE [METHOTREXATE SODIUM] [Concomitant]
     Dosage: UNK
  10. AFLURIA QUAD [Concomitant]
     Dosage: UNK
  11. MEDROXYPROGESTERONE [MEDROXYPROGESTERONE ACETATE] [Concomitant]
     Dosage: UNK

REACTIONS (1)
  - Dyspnoea [Unknown]
